FAERS Safety Report 9261764 (Version 4)
Quarter: 2013Q3

REPORT INFORMATION
  Report Type: Spontaneous
  Country: US (occurrence: US)
  Receive Date: 20130429
  Receipt Date: 20130809
  Transmission Date: 20140515
  Serious: Yes (Other)
  Sender: FDA-Public Use
  Company Number: US-TEVA-400877USA

PATIENT
  Sex: Male

DRUGS (15)
  1. ACTIQ [Suspect]
     Indication: BREAKTHROUGH PAIN
     Dosage: EVERY 6 HOURS FOR BREAKTHROUGH PAIN
     Route: 065
  2. DURAGESIC [Concomitant]
     Indication: PAIN
     Dosage: 75 MCG/HR
     Route: 061
  3. DURAGESIC [Concomitant]
     Dosage: 75 MCG/HR
     Route: 061
  4. FLONASE [Concomitant]
     Dosage: APPLY TO SKIN PRIOR TO PATCH APPLICATION
     Route: 061
  5. NEURONTIN [Concomitant]
     Dosage: 1800 MILLIGRAM DAILY; 2 CAPSULE BY ORAL ROUTE 3 TIMES PER DAY
     Route: 048
  6. SOMA [Concomitant]
     Dosage: 1400 MILLIGRAM DAILY;
     Route: 048
  7. PHENERGAN [Concomitant]
     Indication: NAUSEA
     Dosage: 1 TABLET BY ORAL ROUTE EVERY 6 HOURS PRN
     Route: 048
  8. PHENERGAN [Concomitant]
     Indication: VOMITING
  9. HYDROCODONE W/ACETAMINOPHEN [Concomitant]
     Indication: PAIN
     Dosage: 7.5-500, TAKE 2 TABLETS EVERY 6 HOURS IF NEEDED
     Route: 048
  10. CLONAZEPAM [Concomitant]
     Dosage: .5 MILLIGRAM DAILY; TAKE 1 TABLET BY MOUTH AT BEDTIME
     Route: 048
  11. CARISOPRODOL [Concomitant]
     Dosage: 1400 MILLIGRAM DAILY;
     Route: 048
  12. LORATAB [Concomitant]
     Dosage: 2 TABLET DAILY; 500 MG-10 MG
     Route: 048
  13. DRYSOL [Concomitant]
     Dosage: TOPICALLY ONCE A DAY FOR 30 DAY(S) APPLY TO SKIN PRIOR TO APPLYING PATCHES
     Route: 061
  14. INDOMETHACIN [Concomitant]
     Dosage: 75 MILLIGRAM DAILY; ER
     Route: 048
  15. METHOCARBAMOL [Concomitant]
     Indication: MUSCLE SPASMS
     Dosage: 2 TABLETS EVERY 8 HOURS IF NEEDED
     Route: 048

REACTIONS (2)
  - Off label use [Unknown]
  - Road traffic accident [Unknown]
